FAERS Safety Report 7062475-1 (Version None)
Quarter: 2010Q4

REPORT INFORMATION
  Report Type: 
  Country: None (occurrence: None)
  Receive Date: 20101026
  Receipt Date: 20091104
  Transmission Date: 20110411
  Serious: No
  Sender: FDA-Public Use
  Company Number: US-PFIZER INC-2009293868

PATIENT
  Sex: Male
  Weight: 92.5 kg

DRUGS (3)
  1. LIPITOR [Suspect]
     Dosage: UNK
     Route: 065
     Dates: start: 20010101
  2. NIASPAN [Suspect]
     Indication: HIGH DENSITY LIPOPROTEIN DECREASED
     Dosage: 2000 MG, 1X/DAY
     Route: 065
     Dates: start: 20010101, end: 20030101
  3. NIASPAN [Suspect]
     Dosage: 1000 MG, 1X/DAY

REACTIONS (2)
  - BLOOD TRIGLYCERIDES INCREASED [None]
  - MUSCLE SPASMS [None]
